FAERS Safety Report 25081151 (Version 1)
Quarter: 2025Q1

REPORT INFORMATION
  Report Type: Other
  Country: IT (occurrence: IT)
  Receive Date: 20250315
  Receipt Date: 20250315
  Transmission Date: 20250408
  Serious: Yes (Other)
  Sender: KNIGHT THERAPEUTICS
  Company Number: IT-Knight Therapeutics (USA) Inc.-2172944

PATIENT
  Age: 39 Year
  Sex: Female

DRUGS (2)
  1. IMPAVIDO [Suspect]
     Active Substance: MILTEFOSINE
     Indication: Visceral leishmaniasis
  2. AMPHOTERICIN B [Suspect]
     Active Substance: AMPHOTERICIN B

REACTIONS (5)
  - Good syndrome [Recovered/Resolved]
  - Product use in unapproved indication [Recovered/Resolved]
  - Pyrexia [Recovered/Resolved]
  - Haemoglobin abnormal [Recovered/Resolved]
  - Visceral leishmaniasis [Recovered/Resolved]
